FAERS Safety Report 19352224 (Version 2)
Quarter: 2021Q2

REPORT INFORMATION
  Report Type: Spontaneous
  Country: JP (occurrence: JP)
  Receive Date: 20210531
  Receipt Date: 20210531
  Transmission Date: 20210717
  Serious: Yes (Other)
  Sender: FDA-Public Use
  Company Number: JP-UCBSA-2021025174

PATIENT
  Age: 38 Year
  Sex: Male
  Weight: 51.6 kg

DRUGS (5)
  1. LEVETIRACETAM. [Suspect]
     Active Substance: LEVETIRACETAM
     Indication: PRODUCT USED FOR UNKNOWN INDICATION
     Dosage: 1500 MG A DAY
  2. CEFOZOPRAN [Concomitant]
     Active Substance: CEFOZOPRAN
     Indication: PRODUCT USED FOR UNKNOWN INDICATION
  3. CLINDAMYCIN. [Concomitant]
     Active Substance: CLINDAMYCIN
     Indication: PRODUCT USED FOR UNKNOWN INDICATION
  4. PROPOFOL. [Suspect]
     Active Substance: PROPOFOL
     Indication: PRODUCT USED FOR UNKNOWN INDICATION
     Dosage: 200 MG/H FOR MORE THAN 40 H
     Route: 065
  5. MIDAZOLAM. [Concomitant]
     Active Substance: MIDAZOLAM
     Indication: PRODUCT USED FOR UNKNOWN INDICATION

REACTIONS (3)
  - Rhabdomyolysis [Unknown]
  - Propofol infusion syndrome [Unknown]
  - Chromaturia [Unknown]
